FAERS Safety Report 15533272 (Version 1)
Quarter: 2018Q4

REPORT INFORMATION
  Report Type: Spontaneous
  Country: US (occurrence: US)
  Receive Date: 20181019
  Receipt Date: 20181019
  Transmission Date: 20190205
  Serious: No
  Sender: FDA-Public Use
  Company Number: US-SA-2018SA289295

PATIENT
  Age: 68 Year
  Sex: Male

DRUGS (16)
  1. STERILE WATER [Concomitant]
     Active Substance: WATER
     Dosage: 10 ML, PRN
     Route: 042
     Dates: start: 20171017
  2. LIPITOR [Concomitant]
     Active Substance: ATORVASTATIN CALCIUM
     Dosage: 1 DF, QD BY MOUTH
     Route: 048
     Dates: start: 20170915
  3. DIGOXIN. [Concomitant]
     Active Substance: DIGOXIN
     Dosage: 1 DF, QD
     Route: 048
     Dates: start: 20150625
  4. LISINOPRIL. [Concomitant]
     Active Substance: LISINOPRIL
     Dosage: 1 DF, QD BY MOUTH
     Route: 065
     Dates: start: 20180516
  5. DIPHENHYDRAMINE. [Concomitant]
     Active Substance: DIPHENHYDRAMINE
     Indication: ANAPHYLACTIC REACTION
  6. OMEGA 3 [DOCOSAHEXAENOIC ACID;EICOSAPENTAENOIC ACID;TOCOPHEROL] [Concomitant]
     Dosage: 1 DF, BID BY MOUTH
     Route: 065
     Dates: start: 20161005
  7. FLUBLOK [Concomitant]
     Active Substance: INFLUENZA A VIRUS A/CALIFORNIA/7/2009 (H1N1) RECOMBINANT HEMAGGLUTININ ANTIGEN\INFLUENZA A VIRUS A/VICTORIA/361/2011 (H3N2) RECOMBINANT HEMAGGLUTININ ANTIGEN\INFLUENZA B VIRUS B/WISCONSIN/1/2010 RECOMBINANT HEMAGGLUTININ ANTIGEN
     Dosage: 1 DOSE IMAS DIRECTED
     Route: 065
     Dates: start: 20181010
  8. SODIUM CHLORIDE. [Concomitant]
     Active Substance: SODIUM CHLORIDE
     Indication: FLUSHING
     Dosage: UNK
     Route: 042
     Dates: start: 20171017
  9. VITAMIN D2 [Concomitant]
     Active Substance: ERGOCALCIFEROL
     Dosage: 1 DF, BID
     Route: 048
     Dates: start: 20160418
  10. FABRAZYME [Suspect]
     Active Substance: AGALSIDASE BETA
     Indication: FABRY^S DISEASE
     Dosage: 70 MG, EVERY TWO WEEKS
     Route: 042
     Dates: start: 20171016
  11. PNEUMOVAX 23 [Concomitant]
     Active Substance: PNEUMOCOCCAL VACCINE, POLYVALENT 23
     Dosage: 1 DF IMAS DIRECTED
     Route: 065
     Dates: start: 20181015
  12. ACETAMINOPHEN. [Concomitant]
     Active Substance: ACETAMINOPHEN
     Indication: ANAPHYLACTIC REACTION
     Dosage: 650 MG, UNK BY MOUTH PRIOR TO INFUSION
     Route: 065
     Dates: start: 20171017
  13. DIPHENHYDRAMINE. [Concomitant]
     Active Substance: DIPHENHYDRAMINE
     Indication: PREMEDICATION
     Dosage: 50 MG, PRN BY MOUTH PRIOR IV AS NEEDED
     Dates: start: 20171017
  14. EPINEPHRINE. [Concomitant]
     Active Substance: EPINEPHRINE
     Indication: ANAPHYLACTIC REACTION
     Dosage: 0.3 MG, PRN
     Route: 065
     Dates: start: 20171017
  15. BENAZEPRIL [Concomitant]
     Active Substance: BENAZEPRIL HYDROCHLORIDE
     Dosage: 1 DF, QD BY MOUTH
     Route: 048
     Dates: start: 20160418
  16. NORMAL SALINE [Concomitant]
     Active Substance: SODIUM CHLORIDE
     Dosage: UNK
     Route: 042
     Dates: start: 20171017

REACTIONS (3)
  - Pain [Unknown]
  - Pyrexia [Unknown]
  - Chills [Unknown]
